FAERS Safety Report 9246088 (Version 1)
Quarter: 2013Q2

REPORT INFORMATION
  Report Type: Spontaneous
  Country: JP (occurrence: JP)
  Receive Date: 20130422
  Receipt Date: 20130422
  Transmission Date: 20140414
  Serious: Yes (Other)
  Sender: FDA-Public Use
  Company Number: JP-SANOFI-AVENTIS-2013SA039182

PATIENT
  Sex: Female

DRUGS (1)
  1. ALLEGRA FX [Suspect]
     Indication: PRODUCT USED FOR UNKNOWN INDICATION
     Route: 048
     Dates: start: 20130410

REACTIONS (3)
  - Genital haemorrhage [Unknown]
  - Headache [Unknown]
  - Malaise [Unknown]
